FAERS Safety Report 7529285-X (Version None)
Quarter: 2011Q2

REPORT INFORMATION
  Report Type: 
  Country: None (occurrence: None)
  Receive Date: 20110607
  Receipt Date: 20050803
  Transmission Date: 20111010
  Serious: Yes (Death)
  Sender: FDA-Public Use
  Company Number: PHHO2005CA12359

PATIENT
  Sex: Male

DRUGS (1)
  1. CLOZARIL [Suspect]
     Dates: start: 20021024

REACTIONS (1)
  - DEATH [None]
